FAERS Safety Report 4872458-5 (Version None)
Quarter: 2005Q4

REPORT INFORMATION
  Report Type: 
  Country: None (occurrence: None)
  Receive Date: 20051201
  Receipt Date: 20050804
  Transmission Date: 20060501
  Serious: No
  Sender: FDA-Public Use
  Company Number: 2005PV000820

PATIENT
  Age: 57 Year
  Sex: Male
  Weight: 110.2241 kg

DRUGS (11)
  1. BYETTA [Suspect]
     Indication: DIABETES MELLITUS NON-INSULIN-DEPENDENT
     Dosage: SEE IMAGE
     Route: 058
     Dates: start: 20050617, end: 20050716
  2. BYETTA [Suspect]
     Indication: DIABETES MELLITUS NON-INSULIN-DEPENDENT
     Dosage: SEE IMAGE
     Route: 058
     Dates: start: 20050717
  3. ACTOS [Concomitant]
  4. GLUCOPHAGE [Concomitant]
  5. GLIPIZIDE [Concomitant]
  6. LISINOPRIL [Concomitant]
  7. ZOCOR [Concomitant]
  8. DIOVAN [Concomitant]
  9. HYDROCHLOROTHIAZIDE [Concomitant]
  10. MAGNESIUM [Concomitant]
  11. ASPIRIN [Concomitant]

REACTIONS (4)
  - BALANCE DISORDER [None]
  - DIZZINESS [None]
  - HYPERHIDROSIS [None]
  - NAUSEA [None]
